FAERS Safety Report 7476330-6 (Version None)
Quarter: 2011Q2

REPORT INFORMATION
  Report Type: 
  Country: None (occurrence: None)
  Receive Date: 20110512
  Receipt Date: 20110505
  Transmission Date: 20111010
  Serious: Yes (Other)
  Sender: FDA-Public Use
  Company Number: A0527734A

PATIENT
  Sex: Male
  Weight: 78.2 kg

DRUGS (2)
  1. PAXIL [Suspect]
     Indication: ANXIETY
     Route: 048
     Dates: start: 19980529, end: 20020101
  2. TRAZODONE HCL [Concomitant]
     Dosage: 50MG UNKNOWN
     Route: 048

REACTIONS (23)
  - SUICIDAL IDEATION [None]
  - WEIGHT DECREASED [None]
  - FEELING ABNORMAL [None]
  - AFFECT LABILITY [None]
  - SPEECH DISORDER [None]
  - HEADACHE [None]
  - TREATMENT NONCOMPLIANCE [None]
  - INSOMNIA [None]
  - ABNORMAL DREAMS [None]
  - WITHDRAWAL SYNDROME [None]
  - MEMORY IMPAIRMENT [None]
  - TREMOR [None]
  - MOOD ALTERED [None]
  - ANGER [None]
  - DEPRESSION [None]
  - TINNITUS [None]
  - EYELID PTOSIS [None]
  - FLASHBACK [None]
  - DECREASED APPETITE [None]
  - HYPERHIDROSIS [None]
  - DEPENDENCE [None]
  - AGGRESSION [None]
  - IRRITABILITY [None]
